FAERS Safety Report 9040160 (Version 1)
Quarter: 2013Q1

REPORT INFORMATION
  Report Type: Spontaneous
  Country: US (occurrence: US)
  Receive Date: 20130130
  Receipt Date: 20130130
  Transmission Date: 20140127
  Serious: No
  Sender: FDA-Public Use
  Company Number: US-ABBOTT-12P-163-0950473-00

PATIENT
  Sex: Male
  Weight: 120.31 kg

DRUGS (5)
  1. HUMIRA 40 MG/0.8 ML PEN [Suspect]
     Indication: PSORIASIS
     Dates: start: 201204, end: 201206
  2. HUMIRA 40 MG/0.8 ML PEN [Suspect]
     Dates: start: 201206
  3. DIOVAN [Concomitant]
     Indication: HYPERTENSION
  4. METFORMIN [Concomitant]
     Indication: DIABETES MELLITUS
  5. LANTUS INSULIN [Concomitant]
     Indication: DIABETES MELLITUS

REACTIONS (9)
  - Blister [Recovered/Resolved]
  - Blister [Recovered/Resolved]
  - Psoriasis [Not Recovered/Not Resolved]
  - Pain of skin [Not Recovered/Not Resolved]
  - Hand-foot-and-mouth disease [Unknown]
  - Psoriasis [Not Recovered/Not Resolved]
  - Psoriasis [Not Recovered/Not Resolved]
  - Pain of skin [Not Recovered/Not Resolved]
  - Pain of skin [Not Recovered/Not Resolved]
